FAERS Safety Report 23192994 (Version 5)
Quarter: 2024Q2

REPORT INFORMATION
  Report Type: Report from Study
  Country: JP (occurrence: JP)
  Receive Date: 20231116
  Receipt Date: 20240405
  Transmission Date: 20240716
  Serious: Yes (Death, Hospitalization)
  Sender: FDA-Public Use
  Company Number: JP-ABBVIE-5494695

PATIENT
  Age: 84 Year
  Sex: Male
  Weight: 44 kg

DRUGS (14)
  1. CARBIDOPA\LEVODOPA [Suspect]
     Active Substance: CARBIDOPA\LEVODOPA
     Indication: Parkinson^s disease
     Dosage: MD: 11 ML, CD: 1.7 ML/HR, ED: 1 ML/UNIT ? 1
     Route: 050
     Dates: start: 20180215, end: 20180222
  2. CARBIDOPA\LEVODOPA [Suspect]
     Active Substance: CARBIDOPA\LEVODOPA
     Dosage: MD: 6 ML, CD: 2.0 ML/HR, ED: 1 ML/UNIT ? 1
     Route: 050
     Dates: start: 20180223, end: 20180224
  3. CARBIDOPA\LEVODOPA [Suspect]
     Active Substance: CARBIDOPA\LEVODOPA
     Dosage: MD: 6 ML, CD: 1.9 ML/HR, ED: 1 ML/UNIT ? 1
     Route: 050
     Dates: start: 20180317, end: 20180409
  4. CARBIDOPA\LEVODOPA [Suspect]
     Active Substance: CARBIDOPA\LEVODOPA
     Dosage: MD: 6 ML, CD: 1.9 ML/HR, ED: 1 ML/UNIT ? 1
     Route: 050
     Dates: start: 20180225, end: 20180313
  5. CARBIDOPA\LEVODOPA [Concomitant]
     Active Substance: CARBIDOPA\LEVODOPA
     Indication: Parkinson^s disease
     Dosage: TIME INTERVAL: 0.08333333 DAYS
     Route: 048
     Dates: start: 20180313, end: 20180316
  6. CARBIDOPA\LEVODOPA [Concomitant]
     Active Substance: CARBIDOPA\LEVODOPA
     Indication: Parkinson^s disease
     Dosage: TIME INTERVAL: 0.33333333 DAYS: 300 MILLIGRAM
     Route: 048
     Dates: start: 20180413
  7. CARBOCYSTEINE [Concomitant]
     Active Substance: CARBOCYSTEINE
     Indication: Product used for unknown indication
     Dosage: FORM STRENGTH: 50 PERCENT
     Route: 048
     Dates: end: 20180409
  8. LEVODOPA [Concomitant]
     Active Substance: LEVODOPA
     Indication: Parkinson^s disease
     Dosage: 50 MILLIGRAM
     Route: 042
     Dates: start: 20180409, end: 20180412
  9. SENNOSIDES [Concomitant]
     Active Substance: SENNOSIDES
     Indication: Product used for unknown indication
     Route: 048
     Dates: end: 20180409
  10. MAGNESIUM OXIDE [Concomitant]
     Active Substance: MAGNESIUM OXIDE
     Indication: Product used for unknown indication
     Route: 065
     Dates: end: 20180404
  11. SODIUM CHLORIDE [Concomitant]
     Active Substance: SODIUM CHLORIDE
     Indication: Product used for unknown indication
     Route: 048
     Dates: end: 20180409
  12. TULOBUTEROL [Concomitant]
     Active Substance: TULOBUTEROL
     Indication: Product used for unknown indication
     Route: 061
     Dates: end: 20180409
  13. ROTIGOTINE [Concomitant]
     Active Substance: ROTIGOTINE
     Indication: Parkinson^s disease
     Dosage: 18 MILLIGRAM
     Route: 061
     Dates: end: 20180409
  14. PANTETHINE [Concomitant]
     Active Substance: PANTETHINE
     Indication: Product used for unknown indication
     Dosage: FORM STRENGTH: 20 PERCENT
     Route: 048
     Dates: end: 20180409

REACTIONS (2)
  - Asphyxia [Fatal]
  - Cardio-respiratory arrest [Fatal]

NARRATIVE: CASE EVENT DATE: 20180409
